FAERS Safety Report 9153676 (Version 1)
Quarter: 2013Q1

REPORT INFORMATION
  Report Type: Spontaneous
  Country: US (occurrence: US)
  Receive Date: 20130311
  Receipt Date: 20130311
  Transmission Date: 20140127
  Serious: Yes (Other)
  Sender: FDA-Public Use
  Company Number: US-JNJFOC-20130300279

PATIENT
  Age: 44 None
  Sex: Male
  Weight: 72.58 kg

DRUGS (3)
  1. DOXORUBICIN HYDROCHLORIDE(DOXIL) [Suspect]
     Indication: SARCOMA
     Route: 042
     Dates: start: 20120803, end: 20120913
  2. DOXORUBICIN HYDROCHLORIDE(DOXIL) [Suspect]
     Indication: SARCOMA
     Route: 042
     Dates: start: 20120914, end: 201209
  3. STRIBILD [Concomitant]
     Indication: HIV INFECTION
     Route: 048
     Dates: start: 2012

REACTIONS (3)
  - Onychomadesis [Recovered/Resolved]
  - Blister [Recovering/Resolving]
  - Off label use [Unknown]
